FAERS Safety Report 11075187 (Version 1)
Quarter: 2015Q2

REPORT INFORMATION
  Report Type: Report from Study
  Country: US (occurrence: US)
  Receive Date: 20150429
  Receipt Date: 20150429
  Transmission Date: 20150821
  Serious: Yes (Other)
  Sender: FDA-Public Use
  Company Number: US-SA-2015SA020679

PATIENT
  Age: 55 Year
  Sex: Female

DRUGS (1)
  1. AUBAGIO [Suspect]
     Active Substance: TERIFLUNOMIDE
     Indication: MULTIPLE SCLEROSIS
     Route: 048
     Dates: start: 20150128

REACTIONS (8)
  - Lip swelling [Unknown]
  - Abdominal pain [Unknown]
  - Gastric disorder [Unknown]
  - Headache [Unknown]
  - Diarrhoea [Unknown]
  - Urticaria [Recovered/Resolved]
  - Abdominal pain upper [Unknown]
  - Crohn^s disease [Unknown]

NARRATIVE: CASE EVENT DATE: 2015
